FAERS Safety Report 5915699-8 (Version None)
Quarter: 2008Q4

REPORT INFORMATION
  Report Type: 
  Country: None (occurrence: None)
  Receive Date: 20081009
  Receipt Date: 20081009
  Transmission Date: 20090506
  Serious: Yes (Other)
  Sender: FDA-Public Use
  Company Number: None

PATIENT
  Sex: Male
  Weight: 78.4723 kg

DRUGS (2)
  1. OFLOXACIN [Suspect]
     Dosage: 0.3 % TWICE DAILY EAR
     Dates: start: 20080528
  2. OFLOXACIN [Suspect]
     Dosage: 0.3 % TWICE DAILY EAR
     Dates: start: 20080529

REACTIONS (3)
  - EAR DISCOMFORT [None]
  - EAR DISORDER [None]
  - HEARING IMPAIRED [None]
